FAERS Safety Report 13966639 (Version 8)
Quarter: 2018Q2

REPORT INFORMATION
  Report Type: Report from Study
  Country: None (occurrence: NL)
  Receive Date: 20170914
  Receipt Date: 20180406
  Transmission Date: 20180711
  Serious: Yes (Hospitalization)
  Sender: FDA-Public Use
  Company Number: NL-ABBVIE-17K-114-2094899-00

PATIENT
  Age: 74 Year
  Sex: Male

DRUGS (4)
  1. DUODOPA [Suspect]
     Active Substance: CARBIDOPA\LEVODOPA
     Dosage: MD: 11.0, CD: 3.0, ED: 1.2
     Route: 050
     Dates: start: 2017
  2. MACROGOL [Concomitant]
     Active Substance: POLYETHYLENE GLYCOLS
     Indication: PRODUCT USED FOR UNKNOWN INDICATION
  3. DUODOPA [Suspect]
     Active Substance: CARBIDOPA\LEVODOPA
     Indication: PARKINSON^S DISEASE
     Dosage: MD: 11.0, CD: 2.7, ED: 1.2
     Route: 050
     Dates: start: 20170530, end: 2017
  4. DUODOPA [Suspect]
     Active Substance: CARBIDOPA\LEVODOPA
     Dosage: MD: 11.0, CD: 2.9, ED: 1.5
     Route: 050
     Dates: start: 2017, end: 2017

REACTIONS (11)
  - Volvulus [Not Recovered/Not Resolved]
  - Malaise [Not Recovered/Not Resolved]
  - Volvulus [Recovered/Resolved]
  - Negative thoughts [Not Recovered/Not Resolved]
  - Aphasia [Not Recovered/Not Resolved]
  - Constipation [Recovered/Resolved]
  - Decreased interest [Not Recovered/Not Resolved]
  - Nocturia [Not Recovered/Not Resolved]
  - Bradykinesia [Not Recovered/Not Resolved]
  - Retching [Not Recovered/Not Resolved]
  - Drug ineffective [Not Recovered/Not Resolved]

NARRATIVE: CASE EVENT DATE: 2017
